FAERS Safety Report 11655549 (Version 7)
Quarter: 2019Q2

REPORT INFORMATION
  Report Type: Spontaneous
  Country: US (occurrence: US)
  Receive Date: 20151023
  Receipt Date: 20190605
  Transmission Date: 20190711
  Serious: No
  Sender: FDA-Public Use
  Company Number: US-PFIZER INC-2015340123

PATIENT
  Age: 3 Year
  Sex: Male
  Weight: 16 kg

DRUGS (8)
  1. RAPAMUNE [Suspect]
     Active Substance: SIROLIMUS
     Dosage: 5 ML, 1X/DAY
     Route: 048
  2. RAPAMUNE [Suspect]
     Active Substance: SIROLIMUS
     Indication: PREMATURE BABY
     Dosage: 4 ML, DAILY
     Route: 048
     Dates: start: 201609
  3. OXCARBAZEPINE. [Concomitant]
     Active Substance: OXCARBAZEPINE
     Indication: SEIZURE
     Dosage: 750 MG, DAILY 450 MG AM, 300 MG PM, (300MG IN THE MORNING AND 450 IN THE EVENING)
     Route: 048
     Dates: start: 201307
  4. RAPAMUNE [Suspect]
     Active Substance: SIROLIMUS
     Indication: POLYHYDRAMNIOS
     Dosage: 3.5 MG, 1X/DAY
     Route: 048
     Dates: start: 201204
  5. RAPAMUNE [Suspect]
     Active Substance: SIROLIMUS
     Indication: EPILEPSY
     Dosage: 3.5 MG, 1X/DAY
     Route: 048
     Dates: start: 201604
  6. RAPAMUNE [Suspect]
     Active Substance: SIROLIMUS
     Indication: NEURODEVELOPMENTAL DISORDER
     Dosage: 1 MG, UNK
     Route: 048
  7. RAPAMUNE [Suspect]
     Active Substance: SIROLIMUS
     Indication: CEREBRAL DISORDER
     Dosage: 3 ML, DAILY
     Route: 048
  8. RAPAMUNE [Suspect]
     Active Substance: SIROLIMUS
     Indication: GENE MUTATION
     Dosage: 3 ML, DAILY
     Route: 048

REACTIONS (7)
  - Gastroenteritis viral [Recovered/Resolved]
  - Gastroenteritis viral [Recovered/Resolved]
  - Pyrexia [Recovered/Resolved]
  - Fungal skin infection [Recovered/Resolved]
  - Product use in unapproved indication [Unknown]
  - Impaired healing [Recovered/Resolved]
  - Drug level decreased [Unknown]

NARRATIVE: CASE EVENT DATE: 201204
